FAERS Safety Report 5393801-7 (Version None)
Quarter: 2007Q3

REPORT INFORMATION
  Report Type: 
  Country: None (occurrence: None)
  Receive Date: 20070720
  Receipt Date: 20070720
  Transmission Date: 20080115
  Serious: Yes (Other)
  Sender: FDA-Public Use
  Company Number: None

PATIENT
  Sex: Female
  Weight: 56.6996 kg

DRUGS (2)
  1. CLARITHROMYCIN [Suspect]
     Indication: PHARYNGITIS
     Dosage: 500 MG Q 12 H ORAL
     Route: 048
     Dates: start: 20070603, end: 20070610
  2. CLARITHROMYCIN [Suspect]
     Indication: SINUSITIS
     Dosage: 500 MG Q 12 H ORAL
     Route: 048
     Dates: start: 20070603, end: 20070610

REACTIONS (4)
  - EAR CONGESTION [None]
  - HEADACHE [None]
  - HEARING IMPAIRED [None]
  - TINNITUS [None]
